FAERS Safety Report 22092536 (Version 4)
Quarter: 2023Q1

REPORT INFORMATION
  Report Type: Report from Study
  Country: MX (occurrence: MX)
  Receive Date: 20230314
  Receipt Date: 20230330
  Transmission Date: 20230418
  Serious: Yes (Other)
  Sender: FDA-Public Use
  Company Number: MX-002147023-NVSC2023MX056355

PATIENT
  Sex: Female
  Weight: 62 kg

DRUGS (3)
  1. KISQALI [Suspect]
     Active Substance: RIBOCICLIB
     Indication: Breast cancer
     Dosage: UNK
     Route: 048
     Dates: start: 202112
  2. ANASTROZOLE [Concomitant]
     Active Substance: ANASTROZOLE
     Indication: Breast cancer
     Dosage: UNK
     Route: 065
  3. LETROZOLE [Concomitant]
     Active Substance: LETROZOLE
     Indication: Product used for unknown indication
     Dosage: UNK (LAST MONTH)
     Route: 065
     Dates: start: 202302

REACTIONS (32)
  - Bone cancer [Unknown]
  - Second primary malignancy [Unknown]
  - Retinal detachment [Unknown]
  - Cardiac valve disease [Unknown]
  - Cerebral disorder [Unknown]
  - Deafness [Unknown]
  - Asphyxia [Unknown]
  - Choking [Unknown]
  - Mobility decreased [Unknown]
  - Nail disorder [Unknown]
  - Fall [Unknown]
  - Bone pain [Unknown]
  - Arthralgia [Unknown]
  - Dizziness [Unknown]
  - Headache [Unknown]
  - Dry eye [Unknown]
  - Memory impairment [Unknown]
  - Pain [Unknown]
  - Speech disorder [Unknown]
  - Body height decreased [Unknown]
  - Tooth disorder [Unknown]
  - Emotional distress [Unknown]
  - Abdominal discomfort [Unknown]
  - Hunger [Unknown]
  - Breast disorder [Unknown]
  - Anxiety [Unknown]
  - Depression [Unknown]
  - Feeling of despair [Unknown]
  - Dysstasia [Unknown]
  - Gait disturbance [Unknown]
  - Dyspnoea [Unknown]
  - Constipation [Unknown]
